FAERS Safety Report 6684566-7 (Version None)
Quarter: 2010Q2

REPORT INFORMATION
  Report Type: 
  Country: None (occurrence: None)
  Receive Date: 20100416
  Receipt Date: 20100412
  Transmission Date: 20101027
  Serious: Yes (Hospitalization)
  Sender: FDA-Public Use
  Company Number: CL-ROCHE-696978

PATIENT
  Sex: Male

DRUGS (3)
  1. PEGINTERFERON ALFA-2A [Suspect]
     Route: 065
     Dates: start: 20090401
  2. ACENOCUMAROLUM [Concomitant]
     Indication: THROMBOSIS PROPHYLAXIS
     Dosage: DRUG NAME REPORTED AS ACENOCUMAROL (NEOSINTROM TABLETS 4 MG)
     Route: 048
  3. OMEPRAZOLE [Concomitant]

REACTIONS (2)
  - ABDOMINAL PAIN [None]
  - THROMBOSIS [None]
